FAERS Safety Report 9585377 (Version 1)
Quarter: 2013Q4

REPORT INFORMATION
  Report Type: Spontaneous
  Country: US (occurrence: US)
  Receive Date: 20131002
  Receipt Date: 20131002
  Transmission Date: 20140711
  Serious: No
  Sender: FDA-Public Use
  Company Number: US-AMGEN-USASP2013063992

PATIENT
  Age: 59 Year
  Sex: Male
  Weight: 102.4 kg

DRUGS (8)
  1. ENBREL [Suspect]
     Indication: PRODUCT USED FOR UNKNOWN INDICATION
     Dosage: 50 MG, 2 TIMES/WK
     Route: 058
  2. CRESTOR [Concomitant]
     Dosage: 5 MG, UNK
  3. BYSTOLIC [Concomitant]
     Dosage: 2.5 MG, UNK
  4. MICARDIS [Concomitant]
     Dosage: 20 MG, UNK
  5. VITAMIN D                          /00107901/ [Concomitant]
     Dosage: 400 UNIT, UNK
  6. COQ 10 [Concomitant]
     Dosage: 10 MG, UNK
  7. ASPIRIN [Concomitant]
     Dosage: 81 MG, UNK
  8. TYLENOL                            /00020001/ [Concomitant]
     Dosage: 325 MG, UNK

REACTIONS (1)
  - Drug ineffective [Unknown]
